FAERS Safety Report 24703323 (Version 2)
Quarter: 2024Q4

REPORT INFORMATION
  Report Type: Spontaneous
  Country: CN (occurrence: CN)
  Receive Date: 20241205
  Receipt Date: 20241223
  Transmission Date: 20250115
  Serious: Yes (Hospitalization, Other)
  Sender: ORGANON
  Company Number: CN-ORGANON-O2412CHN000282

PATIENT
  Age: 34 Year
  Sex: Female
  Weight: 45 kg

DRUGS (9)
  1. FOLLITROPIN BETA [Suspect]
     Active Substance: FOLLITROPIN BETA
     Indication: Infertility female
     Dosage: SUBCUTANEOUS INJECTION, 125IU, QD||
     Route: 058
     Dates: start: 20240902, end: 20240906
  2. FOLLITROPIN BETA [Suspect]
     Active Substance: FOLLITROPIN BETA
     Dosage: SUBCUTANEOUS INJECTION, 125IU, QD||
     Route: 058
     Dates: start: 20240911, end: 20240913
  3. MENOTROPINS [Suspect]
     Active Substance: MENOTROPINS
     Indication: Infertility female
     Dosage: INTRAMUSCULAR INJECTION, 75IU, QD||
     Route: 030
     Dates: start: 20240902, end: 20240910
  4. MENOTROPINS [Suspect]
     Active Substance: MENOTROPINS
     Dosage: INTRAMUSCULAR INJECTION, 75IU, QD||
     Route: 030
     Dates: start: 20240914, end: 20240914
  5. FOLLITROPIN ALFA [Suspect]
     Active Substance: FOLLITROPIN ALFA
     Indication: Infertility female
     Dosage: SUBCUTANEOUS INJECTION, 75IU, QD
     Route: 058
     Dates: start: 20240914, end: 20240914
  6. CHORIOGONADOTROPIN ALFA [Suspect]
     Active Substance: CHORIOGONADOTROPIN ALFA
     Indication: Infertility female
     Dosage: SUBCUTANEOUS INJECTION, 250UG, QD
     Route: 058
     Dates: start: 20240916, end: 20240916
  7. SODIUM CHLORIDE [Concomitant]
     Active Substance: SODIUM CHLORIDE
     Indication: Medication dilution
     Dosage: INTRAMUSCULAR INJECTION, 2ML, QD
     Route: 030
     Dates: start: 20240902, end: 20240910
  8. SODIUM CHLORIDE [Concomitant]
     Active Substance: SODIUM CHLORIDE
     Dosage: INTRAMUSCULAR INJECTION, 2ML, QD
     Route: 030
     Dates: start: 20240914, end: 20240914
  9. STERILE WATER [Concomitant]
     Active Substance: WATER
     Indication: Medication dilution
     Dosage: SUBCUTANEOUS INJECTION, 1ML, QD||
     Route: 058
     Dates: start: 20240914, end: 20240914

REACTIONS (5)
  - Ovarian hyperstimulation syndrome [Recovering/Resolving]
  - Abdominal distension [Recovering/Resolving]
  - Abdominal pain [Recovering/Resolving]
  - Chest discomfort [Recovering/Resolving]
  - Asthenia [Recovering/Resolving]

NARRATIVE: CASE EVENT DATE: 20240918
